FAERS Safety Report 9176532 (Version 1)
Quarter: 2013Q1

REPORT INFORMATION
  Report Type: Spontaneous
  Country: US (occurrence: None)
  Receive Date: 20130320
  Receipt Date: 20130320
  Transmission Date: 20140127
  Serious: Yes (Other)
  Sender: FDA-Public Use
  Company Number: None

PATIENT
  Age: 65 Year
  Sex: Female
  Weight: 64.41 kg

DRUGS (1)
  1. JANUVIA 100 MG MERCK [Suspect]
     Indication: TYPE 2 DIABETES MELLITUS
     Dosage: HALF 100MG TABLET 1/DAY PO
     Dates: start: 20070215, end: 20100916

REACTIONS (11)
  - Abdominal pain upper [None]
  - Flank pain [None]
  - Muscle spasms [None]
  - Pain [None]
  - Musculoskeletal disorder [None]
  - Insomnia [None]
  - Amylase increased [None]
  - Lipase increased [None]
  - Blood urea abnormal [None]
  - Glomerular filtration rate abnormal [None]
  - Glycosylated haemoglobin increased [None]
